FAERS Safety Report 20907404 (Version 1)
Quarter: 2022Q2

REPORT INFORMATION
  Report Type: Report from Study
  Country: GB (occurrence: GB)
  Receive Date: 20220602
  Receipt Date: 20220602
  Transmission Date: 20220721
  Serious: Yes (Other)
  Sender: FDA-Public Use
  Company Number: GB-MYLANLABS-2022M1041461

PATIENT

DRUGS (1)
  1. CARVEDILOL [Suspect]
     Active Substance: CARVEDILOL
     Indication: Gastrooesophageal variceal haemorrhage prophylaxis
     Dosage: TAKING CARVEDILOL IN THE MORNING
     Route: 065

REACTIONS (5)
  - Syncope [Unknown]
  - Hyperhidrosis [Unknown]
  - Hypotension [Unknown]
  - Dizziness [Unknown]
  - Off label use [Unknown]
